FAERS Safety Report 9863904 (Version 1)
Quarter: 2014Q1

REPORT INFORMATION
  Report Type: Spontaneous
  Country: HU (occurrence: HU)
  Receive Date: 20140203
  Receipt Date: 20140203
  Transmission Date: 20141002
  Serious: Yes (Hospitalization)
  Sender: FDA-Public Use
  Company Number: HU-GLAXOSMITHKLINE-B0965717A

PATIENT
  Age: 39 Year
  Sex: Male

DRUGS (2)
  1. VOTRIENT [Suspect]
     Indication: SARCOMA
     Route: 065
     Dates: start: 20140117, end: 20140127
  2. SYNCUMAR [Concomitant]
     Indication: HEART VALVE OPERATION

REACTIONS (1)
  - Haemoptysis [Not Recovered/Not Resolved]
